FAERS Safety Report 4840193-5 (Version None)
Quarter: 2005Q4

REPORT INFORMATION
  Report Type: 
  Country: None (occurrence: None)
  Receive Date: 20051125
  Receipt Date: 20051116
  Transmission Date: 20060501
  Serious: Yes (Hospitalization)
  Sender: FDA-Public Use
  Company Number: 219585

PATIENT
  Age: 17 Year
  Sex: Male

DRUGS (8)
  1. NUTROPIN AQ [Suspect]
     Indication: CARDIOVASCULAR DISORDER
     Dosage: 2.2 MG, QD
     Dates: start: 20000112
  2. CELLCEPT [Concomitant]
  3. CIPRO [Concomitant]
  4. NEORAL [Concomitant]
  5. PREDNISONE [Concomitant]
  6. PRILOSEC [Concomitant]
  7. SOTALOL HCL [Concomitant]
  8. IMMUNOSUPPRESSANT NOS (IMMUNOSUPPRESSANT NOS) [Concomitant]

REACTIONS (2)
  - PATHOGEN RESISTANCE [None]
  - PNEUMONIA [None]
